FAERS Safety Report 24350271 (Version 1)
Quarter: 2024Q3

REPORT INFORMATION
  Report Type: Spontaneous
  Country: CN (occurrence: CN)
  Receive Date: 20240923
  Receipt Date: 20240923
  Transmission Date: 20241017
  Serious: No
  Sender: ROCHE
  Company Number: CN-ROCHE-3504511

PATIENT
  Age: 70 Year
  Sex: Female
  Weight: 49.0 kg

DRUGS (3)
  1. HERCEPTIN [Suspect]
     Active Substance: TRASTUZUMAB
     Indication: Breast cancer recurrent
     Dosage: 6MG/KG
     Route: 041
     Dates: start: 20240106, end: 20240106
  2. DOCETAXEL [Suspect]
     Active Substance: DOCETAXEL\DOCETAXEL ANHYDROUS
     Indication: Breast cancer recurrent
     Dosage: 75MG/M2
     Route: 041
     Dates: start: 20240106, end: 20240106
  3. CARBOPLATIN [Suspect]
     Active Substance: CARBOPLATIN
     Indication: Breast cancer recurrent
     Dosage: AUC6
     Route: 041
     Dates: start: 20240106, end: 20240106

REACTIONS (2)
  - Asthenia [Recovering/Resolving]
  - Myelosuppression [Recovering/Resolving]

NARRATIVE: CASE EVENT DATE: 20240109
